FAERS Safety Report 13618216 (Version 4)
Quarter: 2018Q1

REPORT INFORMATION
  Report Type: Spontaneous
  Country: JP (occurrence: JP)
  Receive Date: 20170606
  Receipt Date: 20180103
  Transmission Date: 20180508
  Serious: Yes (Other)
  Sender: FDA-Public Use
  Company Number: JP-PFIZER INC-2017194861

PATIENT
  Age: 10 Year
  Sex: Female

DRUGS (6)
  1. METHOTREXATE. [Suspect]
     Active Substance: METHOTREXATE
     Indication: OSTEOSARCOMA
     Dosage: TOTAL CUMULATIVE DOSE: 20 G/M2
  2. CARBOPLATIN. [Suspect]
     Active Substance: CARBOPLATIN
     Indication: OSTEOSARCOMA
     Dosage: TOTAL CUMULATIVE DOSE: 1 G/M2
  3. CISPLATIN. [Suspect]
     Active Substance: CISPLATIN
     Indication: OSTEOSARCOMA
     Dosage: TOTAL CUMULATIVE DOSE: 300 MG/M2
  4. IFOSFAMIDE. [Suspect]
     Active Substance: IFOSFAMIDE
     Indication: OSTEOSARCOMA
     Dosage: TOTAL CUMULATIVE DOSE: 29 G/M2
  5. ADRIAMYCIN [Suspect]
     Active Substance: DOXORUBICIN HYDROCHLORIDE
     Indication: OSTEOSARCOMA
     Dosage: TOTAL CUMULATIVE DOSE: 300 MG/M2
  6. ETOPOSIDE. [Suspect]
     Active Substance: ETOPOSIDE
     Indication: OSTEOSARCOMA
     Dosage: TOTAL CUMULATIVE DOSE: 500 MG/M2

REACTIONS (3)
  - Ewing^s sarcoma [Unknown]
  - Cardiac disorder [Unknown]
  - Second primary malignancy [Unknown]
